FAERS Safety Report 14285711 (Version 1)
Quarter: 2017Q4

REPORT INFORMATION
  Report Type: Spontaneous
  Country: US (occurrence: US)
  Receive Date: 20171214
  Receipt Date: 20171214
  Transmission Date: 20180321
  Serious: Yes (Other)
  Sender: FDA-Public Use
  Company Number: US-AMGEN-USASP2017183446

PATIENT
  Age: 83 Year
  Sex: Female

DRUGS (2)
  1. PROLIA [Suspect]
     Active Substance: DENOSUMAB
     Indication: OSTEOPOROSIS POSTMENOPAUSAL
     Dosage: 60 MG, Q6MO
     Route: 065
     Dates: start: 2014
  2. CALCIUM + D3 [Concomitant]
     Active Substance: CALCIUM\CHOLECALCIFEROL
     Dosage: UNK

REACTIONS (9)
  - Bone disorder [Unknown]
  - Arthralgia [Unknown]
  - Bone pain [Unknown]
  - Sensory loss [Unknown]
  - Blood calcium abnormal [Unknown]
  - Pain [Not Recovered/Not Resolved]
  - Myalgia [Unknown]
  - Spinal cord disorder [Unknown]
  - Bone density decreased [Unknown]

NARRATIVE: CASE EVENT DATE: 2016
